FAERS Safety Report 8417549-7 (Version None)
Quarter: 2012Q2

REPORT INFORMATION
  Report Type: 
  Country: None (occurrence: None)
  Receive Date: 20120606
  Receipt Date: 20120606
  Transmission Date: 20120825
  Serious: Yes (Death, Life-Threatening, Hospitalization, Other)
  Sender: FDA-Public Use
  Company Number: LB-ABBOTT-12P-093-0942906-00

PATIENT
  Sex: Male

DRUGS (2)
  1. HUMIRA [Suspect]
     Indication: PSORIASIS
     Route: 065
     Dates: end: 20120323
  2. METHOTREXATE [Concomitant]
     Indication: PSORIASIS
     Route: 065

REACTIONS (5)
  - HERPES ZOSTER [None]
  - COLITIS ULCERATIVE [None]
  - PARALYSIS [None]
  - HAEMORRHAGE [None]
  - GUILLAIN-BARRE SYNDROME [None]
